FAERS Safety Report 13782329 (Version 1)
Quarter: 2017Q3

REPORT INFORMATION
  Report Type: Report from Study
  Country: US (occurrence: US)
  Receive Date: 20170724
  Receipt Date: 20170724
  Transmission Date: 20171127
  Serious: No
  Sender: FDA-Public Use
  Company Number: US-IPSEN BIOPHARMACEUTICALS, INC.-2016-02304

PATIENT
  Age: 43 Year
  Sex: Male
  Weight: 68 kg

DRUGS (13)
  1. ZYRTEC [Concomitant]
     Active Substance: CETIRIZINE HYDROCHLORIDE
  2. MULTIVITAMIN [Concomitant]
     Active Substance: VITAMINS
  3. SOMATULINE DEPOT [Suspect]
     Active Substance: LANREOTIDE ACETATE
     Indication: GASTRINOMA
     Dosage: 60MG
     Route: 058
     Dates: start: 201511
  4. FISH OIL [Concomitant]
     Active Substance: FISH OIL
  5. PANTOPRAZOLE [Concomitant]
     Active Substance: PANTOPRAZOLE
  6. CALCIUM CARBONATE. [Concomitant]
     Active Substance: CALCIUM CARBONATE
  7. MEDERMA [Concomitant]
     Active Substance: AVOBENZONE\OCTOCRYLENE\OXYBENZONE
  8. BENADRYL [Concomitant]
     Active Substance: DIPHENHYDRAMINE HYDROCHLORIDE
  9. HYDROCORTISONE. [Concomitant]
     Active Substance: HYDROCORTISONE
  10. TUMS [Concomitant]
     Active Substance: CALCIUM CARBONATE
  11. ADVIL [Concomitant]
     Active Substance: IBUPROFEN
  12. TYLENOL [Concomitant]
     Active Substance: ACETAMINOPHEN
  13. SUDAFED [Concomitant]
     Active Substance: PSEUDOEPHEDRINE HYDROCHLORIDE

REACTIONS (12)
  - Diarrhoea [Recovered/Resolved]
  - Lack of administration site rotation [Unknown]
  - Abdominal pain upper [Recovered/Resolved]
  - Injection site reaction [Unknown]
  - Diarrhoea [Recovered/Resolved]
  - Injection site pruritus [Recovered/Resolved]
  - Injection site swelling [Recovered/Resolved]
  - Injection site rash [Recovered/Resolved]
  - Injection site swelling [Recovered/Resolved]
  - Injection site inflammation [Unknown]
  - Flatulence [Recovered/Resolved]
  - Abdominal distension [Recovered/Resolved]

NARRATIVE: CASE EVENT DATE: 201511
